FAERS Safety Report 5128618-1 (Version None)
Quarter: 2006Q4

REPORT INFORMATION
  Report Type: 
  Country: None (occurrence: None)
  Receive Date: 20061011
  Receipt Date: 20060926
  Transmission Date: 20070319
  Serious: Yes (Other)
  Sender: FDA-Public Use
  Company Number: AZAUS200600363

PATIENT
  Age: 51 Year
  Sex: Male
  Weight: 111.1 kg

DRUGS (6)
  1. VIDAZA [Suspect]
     Indication: METASTATIC MALIGNANT MELANOMA
     Dosage: 75 MG/M2 (DAILY X 3 DAYS EVERY 2 WEEKS), SUBCUTANEOUS
     Route: 058
     Dates: start: 20060328
  2. INTERFERON (INTERFERON) [Suspect]
     Indication: METASTATIC MALIGNANT MELANOMA
     Dosage: 9 MILLION UNITS/M2 (DAILY 3 TIMES WEEKLY, SUBCUTANEOUS
     Route: 058
     Dates: start: 20060404
  3. AMBIEN CR (ZOLPIDEM TARTRATE) [Concomitant]
  4. FERROUS SULFATE TAB [Concomitant]
  5. PERCOCET [Concomitant]
  6. SYNTHROID [Concomitant]

REACTIONS (3)
  - ARTHROPOD STING [None]
  - IRITIS [None]
  - LOCAL SWELLING [None]
